FAERS Safety Report 10023494 (Version 1)
Quarter: 2014Q1

REPORT INFORMATION
  Report Type: Spontaneous
  Country: US (occurrence: None)
  Receive Date: 20140319
  Receipt Date: 20140319
  Transmission Date: 20141002
  Serious: Yes (Other)
  Sender: FDA-Public Use
  Company Number: None

PATIENT
  Age: 57 Year
  Sex: Female
  Weight: 74.84 kg

DRUGS (1)
  1. PSEUDOEPHEDRINE HCL [Suspect]
     Indication: NASAL CONGESTION
     Dates: start: 20140317, end: 20140317

REACTIONS (5)
  - Rash [None]
  - Headache [None]
  - Feeling hot [None]
  - Erythema [None]
  - Pruritus [None]
